FAERS Safety Report 5673936-1 (Version None)
Quarter: 2008Q2

REPORT INFORMATION
  Report Type: 
  Country: None (occurrence: None)
  Receive Date: 20080226
  Receipt Date: 20070824
  Transmission Date: 20081010
  Serious: Yes (Hospitalization, Other)
  Sender: FDA-Public Use
  Company Number: DSA_30524_2007

PATIENT
  Age: 83 Year
  Sex: Female

DRUGS (15)
  1. VASOTEC [Suspect]
     Indication: HYPERTENSION
     Dosage: (5 MG BID ORAL)
     Route: 048
  2. ALLEGRA /01314202/ [Concomitant]
  3. COREG [Concomitant]
  4. FLONASE [Concomitant]
  5. FOSAMAX [Concomitant]
  6. GLIPIZIDE [Concomitant]
  7. LASIX [Concomitant]
  8. NEURONTIN [Concomitant]
  9. PLAVIX [Concomitant]
  10. ULTRAM [Concomitant]
  11. ZOCOR [Concomitant]
  12. ASPIRIN [Concomitant]
  13. METFORMIN HCL [Concomitant]
  14. NITROGLYCERIN [Concomitant]
  15. QUININE [Concomitant]

REACTIONS (1)
  - HYPERKALAEMIA [None]
